FAERS Safety Report 9215487 (Version 1)
Quarter: 2013Q2

REPORT INFORMATION
  Report Type: Spontaneous
  Country: US (occurrence: US)
  Receive Date: 20130406
  Receipt Date: 20130406
  Transmission Date: 20140414
  Serious: No
  Sender: FDA-Public Use
  Company Number: US-009507513-1304USA002503

PATIENT
  Age: 78 Year
  Sex: Female

DRUGS (1)
  1. AZASITE [Suspect]
     Dosage: 1 GTT, QD
     Route: 047
     Dates: start: 20130207

REACTIONS (1)
  - Vision blurred [Recovered/Resolved]
